FAERS Safety Report 9221080 (Version 1)
Quarter: 2013Q2

REPORT INFORMATION
  Report Type: Report from Study
  Country: US (occurrence: US)
  Receive Date: 20130409
  Receipt Date: 20130409
  Transmission Date: 20140414
  Serious: Yes (Other)
  Sender: FDA-Public Use
  Company Number: US-PFIZER INC-2013107801

PATIENT
  Age: 75 Year
  Sex: Female
  Weight: 70.8 kg

DRUGS (2)
  1. INOTUZUMAB OZOGAMICIN [Suspect]
     Indication: ACUTE LYMPHOCYTIC LEUKAEMIA
     Dosage: 0.5 MG/M2, CYCLIC (1. 8MG/M^2/CYCLE)
     Route: 042
     Dates: start: 20130201, end: 20130318
  2. METHOTREXATE SODIUM [Suspect]
     Dosage: UNK
     Route: 037

REACTIONS (1)
  - Hyponatraemia [Recovered/Resolved]
